FAERS Safety Report 6571900-1 (Version None)
Quarter: 2010Q1

REPORT INFORMATION
  Report Type: 
  Country: None (occurrence: None)
  Receive Date: 20100205
  Receipt Date: 20100202
  Transmission Date: 20100710
  Serious: Yes (Disabling)
  Sender: FDA-Public Use
  Company Number: CA-ROCHE-665687

PATIENT
  Sex: Female
  Weight: 82.5 kg

DRUGS (10)
  1. TRASTUZUMAB [Suspect]
     Dosage: FORM: INFUSION SOLUTION; LAST DOSE PRIOR TO SAE:30 SEP 2009
     Route: 042
     Dates: start: 20090325, end: 20091028
  2. PERTUZUMAB [Suspect]
     Dosage: FORM: INFUSION SOLUTION; LAST DOSE PRIOR TO SAE:30 SEP 2009
     Route: 042
     Dates: start: 20080716, end: 20091028
  3. INSULIN [Concomitant]
     Dosage: DRUG: ^INSULIN LA^ DAILY DOSE: 40 UNITS
     Dates: start: 20090301
  4. METFORMIN HCL [Concomitant]
     Dates: start: 19940101
  5. PAMIDRONATE DISODIUM [Concomitant]
     Dosage: DRUG NAME- PAMIDRONATE- Q6 WEEKS
     Route: 042
     Dates: start: 20080726
  6. IBUPROFEN [Concomitant]
     Dates: start: 20080801
  7. INSULIN RAPID [Concomitant]
     Dosage: DRUG: INSULIN NOVORAPID; DAILY DOSE: 15 UNITS
     Dates: start: 20090301
  8. ZANTAC [Concomitant]
     Dates: start: 20090416
  9. GRAVOL TAB [Concomitant]
     Dates: start: 20090416
  10. ADVIL [Concomitant]
     Dates: start: 20080901

REACTIONS (1)
  - OSMOTIC DEMYELINATION SYNDROME [None]
